FAERS Safety Report 7487110-X (Version None)
Quarter: 2011Q2

REPORT INFORMATION
  Report Type: 
  Country: None (occurrence: None)
  Receive Date: 20110510
  Receipt Date: 20110505
  Transmission Date: 20111010
  Serious: Yes (Hospitalization)
  Sender: FDA-Public Use
  Company Number: WAES 1104USA04020

PATIENT
  Age: 47 Year
  Sex: Female
  Weight: 87.9978 kg

DRUGS (4)
  1. ZOLINZA [Suspect]
     Indication: MULTIPLE MYELOMA
     Dosage: 200 MG/DAILY/PO
     Route: 048
     Dates: start: 20110411
  2. DECADRON [Suspect]
     Indication: MULTIPLE MYELOMA
     Dosage: 20 MG/DAILY/PO
     Route: 048
     Dates: start: 20110411
  3. REVLIMID [Suspect]
     Indication: MULTIPLE MYELOMA
     Dosage: 25 MG/DAILY/PO
     Route: 048
     Dates: start: 20110411
  4. VELCADE [Suspect]
     Indication: MULTIPLE MYELOMA
     Dosage: 1.3 MG/M[2]/DAILY/IV
     Route: 042
     Dates: start: 20110411

REACTIONS (1)
  - PULMONARY EMBOLISM [None]
